FAERS Safety Report 24570219 (Version 2)
Quarter: 2024Q4

REPORT INFORMATION
  Report Type: Spontaneous
  Country: CA (occurrence: CA)
  Receive Date: 20241031
  Receipt Date: 20241105
  Transmission Date: 20250115
  Serious: Yes (Other)
  Sender: STALLERGENES
  Company Number: CA-STALCOR-2024-AER-02186

PATIENT
  Age: 24 Year
  Sex: Female

DRUGS (21)
  1. CAT HAIR, STANDARDIZED [Suspect]
     Active Substance: FELIS CATUS HAIR
     Indication: Hypersensitivity
     Route: 058
  2. CAT HAIR, STANDARDIZED [Suspect]
     Active Substance: FELIS CATUS HAIR
     Route: 058
     Dates: start: 20220826
  3. DOG EPITHELIUM [Suspect]
     Active Substance: CANIS LUPUS FAMILIARIS SKIN
     Indication: Hypersensitivity
     Route: 058
  4. DOG EPITHELIUM [Suspect]
     Active Substance: CANIS LUPUS FAMILIARIS SKIN
     Route: 058
     Dates: start: 20220826
  5. HORSE EPITHELIUM [Suspect]
     Active Substance: EQUUS CABALLUS SKIN
     Indication: Hypersensitivity
     Route: 058
  6. HORSE EPITHELIUM [Suspect]
     Active Substance: EQUUS CABALLUS SKIN
     Route: 058
     Dates: start: 20220826
  7. MOLD MIX A [Suspect]
     Active Substance: ALTERNARIA ALTERNATA\ASPERGILLUS FUMIGATUS\CLADOSPORIUM CLADOSPORIOIDES\PENICILLIUM CHRYSOGENUM VAR.
     Indication: Hypersensitivity
     Route: 058
  8. MOLD MIX A [Suspect]
     Active Substance: ALTERNARIA ALTERNATA\ASPERGILLUS FUMIGATUS\CLADOSPORIUM CLADOSPORIOIDES\PENICILLIUM CHRYSOGENUM VAR.
     Route: 058
     Dates: start: 20220826
  9. 5 GRASS MIX [Suspect]
     Active Substance: AGROSTIS GIGANTEA POLLEN\ANTHOXANTHUM ODORATUM\DACTYLIS GLOMERATA\PHLEUM PRATENSE\POA PRATENSIS
     Indication: Hypersensitivity
     Route: 058
  10. 5 GRASS MIX [Suspect]
     Active Substance: AGROSTIS GIGANTEA POLLEN\ANTHOXANTHUM ODORATUM\DACTYLIS GLOMERATA\PHLEUM PRATENSE\POA PRATENSIS
     Route: 058
     Dates: start: 20220826
  11. 9 TREE MIX [Suspect]
     Active Substance: ACER SACCHARUM POLLEN\ALNUS RHOMBIFOLIA POLLEN\BETULA LENTA POLLEN\CARYA OVATA POLLEN\FRAXINUS AMERI
     Indication: Hypersensitivity
     Route: 058
  12. 9 TREE MIX [Suspect]
     Active Substance: ACER SACCHARUM POLLEN\ALNUS RHOMBIFOLIA POLLEN\BETULA LENTA POLLEN\CARYA OVATA POLLEN\FRAXINUS AMERI
     Route: 058
     Dates: start: 20220826
  13. WHITE BIRCH [Suspect]
     Active Substance: BETULA POPULIFOLIA POLLEN
     Indication: Hypersensitivity
     Route: 058
  14. WHITE BIRCH [Suspect]
     Active Substance: BETULA POPULIFOLIA POLLEN
     Route: 058
     Dates: start: 20220826
  15. 4 WEED MIX [Suspect]
     Active Substance: AMARANTHUS RETROFLEXUS POLLEN\CHENOPODIUM ALBUM POLLEN\PLANTAGO LANCEOLATA POLLEN\XANTHIUM STRUMARIU
     Indication: Hypersensitivity
     Route: 058
  16. 4 WEED MIX [Suspect]
     Active Substance: AMARANTHUS RETROFLEXUS POLLEN\CHENOPODIUM ALBUM POLLEN\PLANTAGO LANCEOLATA POLLEN\XANTHIUM STRUMARIU
     Route: 058
     Dates: start: 20220826
  17. STERILE DILUENT FOR ALLERGENIC EXTRACT (PHENOL) [Suspect]
     Active Substance: PHENOL
     Indication: Hypersensitivity
     Route: 058
  18. STERILE DILUENT FOR ALLERGENIC EXTRACT (PHENOL) [Suspect]
     Active Substance: PHENOL
     Route: 058
     Dates: start: 20220826
  19. BILASTINE [Concomitant]
     Active Substance: BILASTINE
     Indication: Product used for unknown indication
     Dosage: AS NEEDED
     Route: 048
  20. FLUTICASONE FUROATE [Concomitant]
     Active Substance: FLUTICASONE FUROATE
     Indication: Product used for unknown indication
     Dosage: AS NEEDED
  21. SYMBICORT [Concomitant]
     Active Substance: BUDESONIDE\FORMOTEROL FUMARATE DIHYDRATE
     Indication: Product used for unknown indication
     Dosage: 1-2 PUFFS TWICE DAILY AS NEEDED

REACTIONS (5)
  - Anaphylactic reaction [Recovered/Resolved]
  - Urticaria [Recovered/Resolved]
  - Wheezing [Recovered/Resolved]
  - Cough [Recovered/Resolved]
  - Conjunctivitis [Recovered/Resolved]

NARRATIVE: CASE EVENT DATE: 20240827
